FAERS Safety Report 23753436 (Version 1)
Quarter: 2024Q2

REPORT INFORMATION
  Report Type: Spontaneous
  Country: PL (occurrence: PL)
  Receive Date: 20240417
  Receipt Date: 20240417
  Transmission Date: 20240716
  Serious: Yes (Other)
  Sender: FDA-Public Use
  Company Number: PL-ABBVIE-5721831

PATIENT
  Sex: Male

DRUGS (2)
  1. VENETOCLAX [Suspect]
     Active Substance: VENETOCLAX
     Indication: Acute myeloid leukaemia
     Route: 048
     Dates: start: 20220413, end: 2023
  2. AZACITIDINE [Concomitant]
     Active Substance: AZACITIDINE
     Indication: Acute myeloid leukaemia
     Dosage: 75 MG/M2
     Dates: start: 20220413, end: 20220419

REACTIONS (4)
  - Acute graft versus host disease in skin [Unknown]
  - Cytopenia [Unknown]
  - Cytomegalovirus infection reactivation [Unknown]
  - Infection [Unknown]

NARRATIVE: CASE EVENT DATE: 20231121
